FAERS Safety Report 11217246 (Version 2)
Quarter: 2015Q4

REPORT INFORMATION
  Report Type: Report from Study
  Country: DE (occurrence: DE)
  Receive Date: 20150625
  Receipt Date: 20151026
  Transmission Date: 20160304
  Serious: Yes (Life-Threatening, Hospitalization)
  Sender: FDA-Public Use
  Company Number: DE-ROCHE-1598054

PATIENT
  Age: 61 Year
  Sex: Female

DRUGS (13)
  1. SIMVASTATIN. [Concomitant]
     Active Substance: SIMVASTATIN
  2. TOCILIZUMAB [Suspect]
     Active Substance: TOCILIZUMAB
     Indication: RHEUMATOID ARTHRITIS
     Route: 042
     Dates: end: 20140311
  3. LEFLUNOMID [Suspect]
     Active Substance: LEFLUNOMIDE
     Indication: RHEUMATOID ARTHRITIS
     Route: 065
     Dates: end: 201403
  4. HYDROMORPHONE [Concomitant]
     Active Substance: HYDROMORPHONE
  5. NOVAMINSULFON [Concomitant]
     Active Substance: METAMIZOLE
  6. DECORTIN [Concomitant]
     Active Substance: PREDNISONE
  7. OMEPRAZOL [Concomitant]
     Active Substance: OMEPRAZOLE
  8. METFORMIN [Concomitant]
     Active Substance: METFORMIN HYDROCHLORIDE
     Route: 065
  9. SULFASALAZINE DELAYED-RELEASE [Concomitant]
     Active Substance: SULFASALAZINE
     Indication: RHEUMATOID ARTHRITIS
     Route: 065
     Dates: start: 201502
  10. SITAGLIPTIN [Concomitant]
     Active Substance: SITAGLIPTIN
  11. CHLOROQUINE. [Concomitant]
     Active Substance: CHLOROQUINE
     Route: 065
     Dates: start: 201502
  12. IBUPROFEN. [Concomitant]
     Active Substance: IBUPROFEN
  13. RAMIPRIL. [Concomitant]
     Active Substance: RAMIPRIL

REACTIONS (3)
  - Sepsis [Recovered/Resolved]
  - Endocarditis bacterial [Recovered/Resolved]
  - Intervertebral discitis [Recovered/Resolved]

NARRATIVE: CASE EVENT DATE: 201403
